FAERS Safety Report 23566286 (Version 1)
Quarter: 2024Q1

REPORT INFORMATION
  Report Type: Spontaneous
  Country: GB (occurrence: GB)
  Receive Date: 20240226
  Receipt Date: 20240226
  Transmission Date: 20240409
  Serious: Yes (Other)
  Sender: FDA-Public Use
  Company Number: None

PATIENT
  Sex: Female

DRUGS (1)
  1. SERTRALINE [Suspect]
     Active Substance: SERTRALINE HYDROCHLORIDE
     Indication: Product used for unknown indication
     Dosage: UNK
     Route: 065

REACTIONS (12)
  - Suicidal ideation [Recovered/Resolved]
  - Emotional poverty [Recovered/Resolved]
  - Electric shock sensation [Recovered/Resolved]
  - Weight increased [Recovered/Resolved]
  - Dissociation [Recovered/Resolved]
  - Loss of libido [Recovered/Resolved]
  - Self-injurious ideation [Recovered/Resolved]
  - Anorgasmia [Recovered/Resolved]
  - Depression [Recovered/Resolved]
  - Fatigue [Recovered/Resolved]
  - Apathy [Recovered/Resolved]
  - Nausea [Recovered/Resolved]
